FAERS Safety Report 7184947-1 (Version None)
Quarter: 2010Q4

REPORT INFORMATION
  Report Type: 
  Country: None (occurrence: None)
  Receive Date: 20101123
  Receipt Date: 20100830
  Transmission Date: 20110411
  Serious: No
  Sender: FDA-Public Use
  Company Number: 018080

PATIENT
  Sex: Female
  Weight: 31.8 kg

DRUGS (8)
  1. CIMZIA [Suspect]
     Indication: COLITIS ULCERATIVE
     Dosage: (400 MG 1X/MONTH SUBCUTANEOUS)
     Route: 058
     Dates: start: 20100401
  2. CIMZIA [Suspect]
     Indication: CROHN'S DISEASE
     Dosage: (400 MG 1X/MONTH SUBCUTANEOUS)
     Route: 058
     Dates: start: 20100401
  3. VITAMINS NOS [Concomitant]
  4. FERROUS SULFATE TAB [Concomitant]
  5. DIOVAN [Concomitant]
  6. POTASSIUM [Concomitant]
  7. SIMVASTATIN [Concomitant]
  8. .. [Concomitant]

REACTIONS (2)
  - FATIGUE [None]
  - PAIN [None]
